FAERS Safety Report 6541262-4 (Version None)
Quarter: 2010Q1

REPORT INFORMATION
  Report Type: 
  Country: None (occurrence: None)
  Receive Date: 20100118
  Receipt Date: 20100111
  Transmission Date: 20100710
  Serious: No
  Sender: FDA-Public Use
  Company Number: US-B.I. PHARMACEUTICALS,INC./RIDGEFIELD-2010-BP-00297BP

PATIENT
  Sex: Female

DRUGS (4)
  1. ZANTAC 150 [Suspect]
     Indication: HYPERSENSITIVITY
     Dosage: 150 MG
     Route: 048
     Dates: start: 20080101
  2. ZANTAC 150 [Suspect]
     Indication: URTICARIA
  3. CLARITIN [Suspect]
     Indication: HYPERSENSITIVITY
  4. ESTROGENS [Concomitant]
     Indication: HORMONE REPLACEMENT THERAPY

REACTIONS (1)
  - DIZZINESS [None]
